FAERS Safety Report 13483655 (Version 1)
Quarter: 2017Q2

REPORT INFORMATION
  Report Type: Other
  Country: CA (occurrence: CA)
  Receive Date: 20170426
  Receipt Date: 20170426
  Transmission Date: 20170830
  Serious: Yes (Other)
  Sender: FDA-Public Use
  Company Number: CA-SHIRE-CA201709274

PATIENT
  Age: 47 Year
  Sex: Female

DRUGS (4)
  1. AMIZIDE [Concomitant]
     Indication: PRODUCT USED FOR UNKNOWN INDICATION
     Dosage: 5/50MG, QOD
     Route: 048
     Dates: start: 20160615
  2. DOPAMINA [Concomitant]
     Indication: PRODUCT USED FOR UNKNOWN INDICATION
     Dosage: UNK UNK, UNKNOWN
     Route: 065
  3. FIRAZYR [Suspect]
     Active Substance: ICATIBANT ACETATE
     Indication: HEREDITARY ANGIOEDEMA
     Dosage: 30 MG, AS REQ^D
     Route: 058
     Dates: start: 20140926
  4. BERINERT [Concomitant]
     Active Substance: HUMAN C1-ESTERASE INHIBITOR
     Indication: HEREDITARY ANGIOEDEMA
     Dosage: 1500 IU, OTHER (DAILY)
     Route: 065
     Dates: start: 2012

REACTIONS (3)
  - Respiratory tract oedema [Unknown]
  - Hereditary angioedema [Unknown]
  - Nausea [Unknown]

NARRATIVE: CASE EVENT DATE: 201703
